FAERS Safety Report 9116867 (Version 1)
Quarter: 2013Q1

REPORT INFORMATION
  Report Type: Spontaneous
  Country: US (occurrence: US)
  Receive Date: 20130225
  Receipt Date: 20130225
  Transmission Date: 20140127
  Serious: Yes (Hospitalization, Other)
  Sender: FDA-Public Use
  Company Number: PHEH2013US004302

PATIENT
  Sex: Female

DRUGS (12)
  1. SANDOSTATIN LAR DEPOT [Suspect]
     Dosage: 30 MG, MONTHLY
     Route: 042
  2. ACTOS [Concomitant]
  3. AMARYL [Concomitant]
  4. CORTEC [Concomitant]
  5. CRESTOR [Concomitant]
  6. GLIMEPIRIDE [Concomitant]
  7. HYDROCORTISONE [Concomitant]
  8. LEVOXYL [Concomitant]
  9. METFORMIN [Concomitant]
  10. SANDOSTATIN [Concomitant]
  11. SYNTHROID [Concomitant]
  12. FLORINEF [Concomitant]

REACTIONS (4)
  - Hyperkalaemia [Unknown]
  - Blood corticotrophin increased [Unknown]
  - Local swelling [Unknown]
  - Asthenia [Unknown]
